FAERS Safety Report 25243074 (Version 1)
Quarter: 2025Q2

REPORT INFORMATION
  Report Type: Spontaneous
  Country: US (occurrence: US)
  Receive Date: 20250428
  Receipt Date: 20250428
  Transmission Date: 20250717
  Serious: Yes (Other)
  Sender: CHEPLAPHARM
  Company Number: US-CHEPLA-2025005315

PATIENT
  Age: 54 Year
  Sex: Male

DRUGS (2)
  1. OLANZAPINE [Suspect]
     Active Substance: OLANZAPINE
  2. LITHIUM [Suspect]
     Active Substance: LITHIUM

REACTIONS (3)
  - Brain injury [Unknown]
  - Metabolic dysfunction-associated liver disease [Unknown]
  - Tinnitus [Unknown]
